FAERS Safety Report 8078765-X (Version None)
Quarter: 2012Q1

REPORT INFORMATION
  Report Type: 
  Country: None (occurrence: None)
  Receive Date: 20120124
  Receipt Date: 20120113
  Transmission Date: 20120608
  Serious: Yes (Hospitalization, Other)
  Sender: FDA-Public Use
  Company Number: NSR_00468_2012

PATIENT
  Age: 59 Year
  Sex: Male

DRUGS (8)
  1. GABAPENTIN [Concomitant]
  2. SPIRONOLACTONE [Concomitant]
  3. INSULIN [Concomitant]
  4. SERTRALINE HYDROCHLORIDE [Concomitant]
  5. PROPRANOLOL [Suspect]
     Indication: PRODUCT USED FOR UNKNOWN INDICATION
     Dosage: (DF) A FEW YEARS
  6. LISINOPRIL [Concomitant]
  7. LACTULOSE [Concomitant]
  8. FUROSEMIDE [Concomitant]

REACTIONS (5)
  - SCLEROSING ENCAPSULATING PERITONITIS [None]
  - ASCITES [None]
  - BLOOD BILIRUBIN INCREASED [None]
  - HAEMOGLOBIN DECREASED [None]
  - BLOOD GLUCOSE INCREASED [None]
